FAERS Safety Report 13479749 (Version 1)
Quarter: 2017Q2

REPORT INFORMATION
  Report Type: Spontaneous
  Country: US (occurrence: US)
  Receive Date: 20170425
  Receipt Date: 20170425
  Transmission Date: 20170830
  Serious: No
  Sender: FDA-Public Use
  Company Number: GXBR2016US003712

PATIENT
  Sex: Female
  Weight: 87.75 kg

DRUGS (2)
  1. TRIAMTERENE AND HYDROCHLOROTHIAZIDE [Suspect]
     Active Substance: HYDROCHLOROTHIAZIDE\TRIAMTERENE
     Indication: OEDEMA PERIPHERAL
     Dosage: 37.5/25 MG, UNK
     Route: 048
     Dates: start: 201609
  2. GABAPENTIN. [Concomitant]
     Active Substance: GABAPENTIN
     Indication: NERVOUSNESS
     Dosage: UNK DF, UNK

REACTIONS (3)
  - Incorrect dose administered [Recovering/Resolving]
  - Drug ineffective [Recovering/Resolving]
  - Peripheral swelling [Recovering/Resolving]
